FAERS Safety Report 19244345 (Version 2)
Quarter: 2021Q2

REPORT INFORMATION
  Report Type: Report from Study
  Country: GB (occurrence: GB)
  Receive Date: 20210511
  Receipt Date: 20210519
  Transmission Date: 20210717
  Serious: Yes (Other)
  Sender: FDA-Public Use
  Company Number: NVSC2021GB024626

PATIENT
  Sex: Female

DRUGS (2)
  1. OMNITROPE [Suspect]
     Active Substance: SOMATROPIN
     Indication: PRADER-WILLI SYNDROME
     Dosage: 0.1 MG, QD
     Route: 058
     Dates: start: 20210129
  2. OMNITROPE [Suspect]
     Active Substance: SOMATROPIN
     Indication: HORMONE THERAPY

REACTIONS (9)
  - Eating disorder [Unknown]
  - Wrong technique in product usage process [Unknown]
  - Teething [Unknown]
  - Crying [Recovered/Resolved]
  - Dehydration [Unknown]
  - Parasitic gastroenteritis [Unknown]
  - Haematochezia [Unknown]
  - Agitation [Unknown]
  - Incorrect dose administered [Unknown]
